FAERS Safety Report 6359894-5 (Version None)
Quarter: 2009Q3

REPORT INFORMATION
  Report Type: 
  Country: None (occurrence: None)
  Receive Date: 20090917
  Receipt Date: 20090911
  Transmission Date: 20100115
  Serious: Yes (Death, Life-Threatening, Hospitalization)
  Sender: FDA-Public Use
  Company Number: FR-ELI_LILLY_AND_COMPANY-FR200905001004

PATIENT
  Sex: Male

DRUGS (9)
  1. PEMETREXED [Suspect]
     Indication: BONE SARCOMA
     Dosage: 500 MG/M2, ONCE EVERY 3 WEEKS
     Route: 042
     Dates: start: 20090330
  2. FOLIC ACID [Concomitant]
     Indication: PROPHYLAXIS
     Dates: start: 20090323
  3. VITAMIN B-12 [Concomitant]
     Indication: PROPHYLAXIS
     Dosage: UNK, UNK
     Dates: start: 20090323
  4. DEXAMETHASONE [Concomitant]
     Indication: PROPHYLAXIS
     Dosage: UNK, UNK
     Dates: start: 20090329
  5. ATENOLOL [Concomitant]
     Dates: start: 20060101, end: 20090413
  6. LIPANTHYL [Concomitant]
     Dates: start: 20060101, end: 20090413
  7. RIVOTRIL [Concomitant]
     Dates: start: 20060101, end: 20090413
  8. DIFFU K [Concomitant]
     Dates: end: 20090413
  9. KYTRIL /01178101/ [Concomitant]
     Dates: start: 20090330, end: 20090330

REACTIONS (1)
  - GENERAL PHYSICAL HEALTH DETERIORATION [None]
